FAERS Safety Report 5845629-9 (Version None)
Quarter: 2008Q3

REPORT INFORMATION
  Report Type: 
  Country: None (occurrence: None)
  Receive Date: 20080731
  Receipt Date: 20080527
  Transmission Date: 20090109
  Serious: No
  Sender: FDA-Public Use
  Company Number: US200805005609

PATIENT
  Sex: Female

DRUGS (2)
  1. BYETTA [Suspect]
     Dosage: DAILY (1/D), SUBCUTANEOUS
     Route: 058
     Dates: start: 20071201
  2. BYETTA [Suspect]
     Dosage: DAILY (1/D), SUBCUTANEOUS
     Route: 058
     Dates: start: 20080401

REACTIONS (5)
  - COUGH [None]
  - MALAISE [None]
  - NASOPHARYNGITIS [None]
  - OROPHARYNGEAL PAIN [None]
  - SNEEZING [None]
